FAERS Safety Report 11737774 (Version 1)
Quarter: 2015Q4

REPORT INFORMATION
  Report Type: Spontaneous
  Country: GB (occurrence: GB)
  Receive Date: 20151113
  Receipt Date: 20151113
  Transmission Date: 20160304
  Serious: Yes (Other)
  Sender: FDA-Public Use
  Company Number: PHFR2015GB008262

PATIENT
  Sex: Female

DRUGS (1)
  1. SIGNIFOR LAR [Suspect]
     Active Substance: PASIREOTIDE
     Indication: NELSON^S SYNDROME
     Route: 065

REACTIONS (4)
  - Drug ineffective [Unknown]
  - Neoplasm progression [Unknown]
  - Diabetes mellitus [Unknown]
  - Off label use [Unknown]
